FAERS Safety Report 23627936 (Version 1)
Quarter: 2024Q1

REPORT INFORMATION
  Report Type: Report from Study
  Country: MX (occurrence: MX)
  Receive Date: 20240313
  Receipt Date: 20240313
  Transmission Date: 20240409
  Serious: Yes (Other)
  Sender: FDA-Public Use
  Company Number: MX-002147023-NVSC2024MX052373

PATIENT
  Sex: Female
  Weight: 70 kg

DRUGS (2)
  1. HYDROCHLOROTHIAZIDE\VALSARTAN [Suspect]
     Active Substance: HYDROCHLOROTHIAZIDE\VALSARTAN
     Indication: Hypertension
     Dosage: 1 DOSAGE FORM (160/12.5 MG), QD
     Route: 048
     Dates: start: 2017
  2. HYDROCHLOROTHIAZIDE\VALSARTAN [Suspect]
     Active Substance: HYDROCHLOROTHIAZIDE\VALSARTAN
     Dosage: 2 DOSAGE FORM (80/12.5 MG), QD
     Route: 048
     Dates: start: 20240220

REACTIONS (4)
  - Hyperthyroidism [Unknown]
  - Headache [Recovered/Resolved]
  - Blood cholesterol increased [Unknown]
  - Off label use [Not Recovered/Not Resolved]

NARRATIVE: CASE EVENT DATE: 20180101
